FAERS Safety Report 13982229 (Version 1)
Quarter: 2017Q3

REPORT INFORMATION
  Report Type: Spontaneous
  Country: US (occurrence: US)
  Receive Date: 20170918
  Receipt Date: 20170918
  Transmission Date: 20171128
  Serious: No
  Sender: FDA-Public Use
  Company Number: US-BIOGEN-2017BI00457021

PATIENT
  Sex: Female

DRUGS (1)
  1. TYSABRI [Suspect]
     Active Substance: NATALIZUMAB
     Indication: MULTIPLE SCLEROSIS
     Route: 065
     Dates: start: 20080915, end: 20170823

REACTIONS (1)
  - Nuclear magnetic resonance imaging abnormal [Not Recovered/Not Resolved]
